FAERS Safety Report 14354891 (Version 2)
Quarter: 2018Q1

REPORT INFORMATION
  Report Type: Spontaneous
  Country: JP (occurrence: JP)
  Receive Date: 20180105
  Receipt Date: 20180205
  Transmission Date: 20180509
  Serious: Yes (Other)
  Sender: FDA-Public Use
  Company Number: JP-OTSUKA-2017_024329

PATIENT
  Age: 66 Year
  Sex: Female

DRUGS (4)
  1. AZILVA [Concomitant]
     Active Substance: AZILSARTAN KAMEDOXOMIL
     Indication: PRODUCT USED FOR UNKNOWN INDICATION
     Dosage: 20 MG, QD
     Route: 048
     Dates: end: 2017
  2. SAMSCA [Suspect]
     Active Substance: TOLVAPTAN
     Indication: CONGENITAL CYSTIC KIDNEY DISEASE
     Dosage: 90MG/DAY
     Route: 048
     Dates: start: 20170805, end: 20170928
  3. SAMSCA [Suspect]
     Active Substance: TOLVAPTAN
     Dosage: 60 MG/DAY
     Route: 048
     Dates: start: 20170215, end: 20170804
  4. SAMSCA [Suspect]
     Active Substance: TOLVAPTAN
     Dosage: 60 MG/DAY
     Route: 048
     Dates: start: 20170929, end: 20171025

REACTIONS (1)
  - Hepatic function abnormal [Recovering/Resolving]

NARRATIVE: CASE EVENT DATE: 20170908
